FAERS Safety Report 6960408-7 (Version None)
Quarter: 2010Q3

REPORT INFORMATION
  Report Type: 
  Country: None (occurrence: None)
  Receive Date: 20100823
  Receipt Date: 20100701
  Transmission Date: 20110219
  Serious: No
  Sender: FDA-Public Use
  Company Number: 014988

PATIENT
  Sex: Male
  Weight: 81.8 kg

DRUGS (9)
  1. CIMZIA [Suspect]
     Indication: CROHN'S DISEASE
     Dosage: (400 MG 1X/MONTH SUBCUTANEOUS)
     Route: 058
     Dates: start: 20070101
  2. LIPITOR [Concomitant]
  3. VITAMIN B12 NOS [Concomitant]
  4. CYMBALTA [Concomitant]
  5. FOSAMAX [Concomitant]
  6. MIRAPEX [Concomitant]
  7. NEURONTIN [Concomitant]
  8. INEXIUM /01479302 [Concomitant]
  9. WELLBUTRIN [Concomitant]

REACTIONS (2)
  - CROHN'S DISEASE [None]
  - DENTAL CARIES [None]
